FAERS Safety Report 19742170 (Version 1)
Quarter: 2021Q3

REPORT INFORMATION
  Report Type: Report from Study
  Country: None (occurrence: US)
  Receive Date: 20210825
  Receipt Date: 20210825
  Transmission Date: 20211014
  Serious: Yes (Hospitalization)
  Sender: FDA-Public Use
  Company Number: US-ULTRAGENYX PHARMACEUTICAL INC.-US-UGNX-21-00271

PATIENT
  Age: 13 Year
  Sex: Female

DRUGS (1)
  1. DOJOLVI [Suspect]
     Active Substance: TRIHEPTANOIN
     Indication: VERY LONG-CHAIN ACYL-COENZYME A DEHYDROGENASE DEFICIENCY
     Dosage: G?TUBE, 80 ML
     Route: 048
     Dates: start: 202104

REACTIONS (3)
  - Diarrhoea [Unknown]
  - Asthenia [Unknown]
  - Fatigue [Unknown]

NARRATIVE: CASE EVENT DATE: 202108
